FAERS Safety Report 7588685-2 (Version None)
Quarter: 2011Q3

REPORT INFORMATION
  Report Type: 
  Country: None (occurrence: None)
  Receive Date: 20110705
  Receipt Date: 20110622
  Transmission Date: 20111222
  Serious: Yes (Hospitalization, Other)
  Sender: FDA-Public Use
  Company Number: US-ELI_LILLY_AND_COMPANY-US201106008162

PATIENT
  Sex: Female

DRUGS (1)
  1. FORTEO [Suspect]
     Indication: OSTEOPOROSIS
     Dosage: 20 UG, QD
     Dates: start: 20110614, end: 20110620

REACTIONS (7)
  - HEAD INJURY [None]
  - DYSKINESIA [None]
  - TREMOR [None]
  - WOUND HAEMORRHAGE [None]
  - FALL [None]
  - ANKLE FRACTURE [None]
  - ASTHENIA [None]
